FAERS Safety Report 25899227 (Version 3)
Quarter: 2025Q4

REPORT INFORMATION
  Report Type: Spontaneous
  Country: US (occurrence: US)
  Receive Date: 20251009
  Receipt Date: 20251217
  Transmission Date: 20260117
  Serious: No
  Sender: JOHNSON AND JOHNSON
  Company Number: US-JNJFOC-20251004512

PATIENT
  Age: 19 Year

DRUGS (2)
  1. TREMFYA [Suspect]
     Active Substance: GUSELKUMAB
     Indication: Colitis ulcerative
     Dosage: FORM STRENGTH: 200 MG/ 2 ML
  2. TREMFYA [Suspect]
     Active Substance: GUSELKUMAB

REACTIONS (4)
  - Product dose omission issue [Unknown]
  - Inadvertent injection air bubble [Unknown]
  - Pain in extremity [Unknown]
  - Product design issue [Unknown]

NARRATIVE: CASE EVENT DATE: 20251001
